FAERS Safety Report 7985455-8 (Version None)
Quarter: 2011Q4

REPORT INFORMATION
  Report Type: 
  Country: None (occurrence: None)
  Receive Date: 20111216
  Receipt Date: 20111215
  Transmission Date: 20120403
  Serious: Yes (Other)
  Sender: FDA-Public Use
  Company Number: IT-ROCHE-1022251

PATIENT
  Sex: Male

DRUGS (6)
  1. VESANOID [Suspect]
     Indication: ACUTE MYELOID LEUKAEMIA
     Route: 048
     Dates: start: 20100206
  2. METHOTREXATE [Concomitant]
     Route: 065
  3. CALCIUM [Concomitant]
     Route: 065
  4. LEVOTHYROXINE SODIUM [Concomitant]
     Route: 065
  5. VITAMIN D [Concomitant]
     Route: 065
  6. PURINETHOL [Concomitant]
     Route: 065

REACTIONS (5)
  - ASTHENIA [None]
  - DIPLOPIA [None]
  - VOMITING [None]
  - HEADACHE [None]
  - NAUSEA [None]
